FAERS Safety Report 16681898 (Version 1)
Quarter: 2019Q3

REPORT INFORMATION
  Report Type: Spontaneous
  Country: US (occurrence: US)
  Receive Date: 20190808
  Receipt Date: 20190808
  Transmission Date: 20191004
  Serious: Yes (Death)
  Sender: FDA-Public Use
  Company Number: US-FRESENIUS KABI-FK201908597

PATIENT

DRUGS (1)
  1. MANNITOL (MANUFACTURER UNKNOWN) [Suspect]
     Active Substance: MANNITOL
     Indication: DRUG THERAPY
     Route: 013

REACTIONS (3)
  - Brain stem stroke [Fatal]
  - Product use issue [Fatal]
  - Product use in unapproved indication [Fatal]
